FAERS Safety Report 20211203 (Version 1)
Quarter: 2021Q4

REPORT INFORMATION
  Report Type: Other
  Country: ES (occurrence: ES)
  Receive Date: 20211221
  Receipt Date: 20211221
  Transmission Date: 20220303
  Serious: Yes (Other)
  Sender: FDA-Public Use
  Company Number: ES-DEXPHARM-20212078

PATIENT
  Age: 7 Year
  Sex: Male

DRUGS (1)
  1. LANSOPRAZOLE [Interacting]
     Active Substance: LANSOPRAZOLE
     Indication: Eosinophilic oesophagitis
     Dosage: THE FIRST LANSOPRAZOLE ADMINISTRATION TOOK PLACE 1H AFTER DAILY MILK INTAKE

REACTIONS (2)
  - Anaphylactic reaction [Recovered/Resolved]
  - Food interaction [Recovered/Resolved]
